FAERS Safety Report 21163628 (Version 1)
Quarter: 2022Q3

REPORT INFORMATION
  Report Type: Report from Study
  Country: US (occurrence: US)
  Receive Date: 20220802
  Receipt Date: 20220802
  Transmission Date: 20221027
  Serious: Yes (Hospitalization, Other)
  Sender: FDA-Public Use
  Company Number: US-BIOVITRUM-2022US09100

PATIENT
  Sex: Female

DRUGS (2)
  1. KINERET [Suspect]
     Active Substance: ANAKINRA
     Indication: Encephalitis
  2. KINERET [Suspect]
     Active Substance: ANAKINRA
     Indication: Encephalomyelitis

REACTIONS (4)
  - Pyrexia [Recovering/Resolving]
  - Seizure [Recovering/Resolving]
  - Vascular device infection [Unknown]
  - Off label use [Unknown]
